FAERS Safety Report 6774298-9 (Version None)
Quarter: 2010Q2

REPORT INFORMATION
  Report Type: 
  Country: None (occurrence: None)
  Receive Date: 20100617
  Receipt Date: 20100607
  Transmission Date: 20101027
  Serious: Yes (Other)
  Sender: FDA-Public Use
  Company Number: AU-PFIZER INC-2010071105

PATIENT
  Age: 35 Year
  Sex: Female

DRUGS (4)
  1. CHAMPIX [Suspect]
     Dosage: UNK
     Dates: start: 20100530
  2. XANAX [Concomitant]
     Indication: ANXIETY
     Dosage: UNK
  3. ZYPREXA [Concomitant]
     Indication: AFFECTIVE DISORDER
     Dosage: UNK
  4. DEXAMPHETAMINE [Concomitant]
     Dosage: UNK

REACTIONS (5)
  - DIZZINESS [None]
  - DYSPNOEA [None]
  - HAEMOPTYSIS [None]
  - MIGRAINE [None]
  - PNEUMONIA [None]
